FAERS Safety Report 9881202 (Version 3)
Quarter: 2017Q1

REPORT INFORMATION
  Report Type: Report from Study
  Country: US (occurrence: US)
  Receive Date: 20140207
  Receipt Date: 20170317
  Transmission Date: 20170429
  Serious: Yes (Death, Hospitalization)
  Sender: FDA-Public Use
  Company Number: US-SA-2014SA014597

PATIENT
  Age: 54 Year
  Sex: Male

DRUGS (1)
  1. FABRAZYME [Suspect]
     Active Substance: AGALSIDASE BETA
     Indication: FABRY^S DISEASE
     Route: 042
     Dates: start: 20030804

REACTIONS (4)
  - Colon cancer [Unknown]
  - Vertigo [Not Recovered/Not Resolved]
  - Vascular occlusion [Fatal]
  - Intestinal ischaemia [Fatal]
